FAERS Safety Report 9728027 (Version 1)
Quarter: 2013Q4

REPORT INFORMATION
  Report Type: Spontaneous
  Country: US (occurrence: None)
  Receive Date: 20131203
  Receipt Date: 20131203
  Transmission Date: 20140711
  Serious: Yes (Hospitalization, Disabling, Congenital Anomaly)
  Sender: FDA-Public Use
  Company Number: None

PATIENT
  Age: 49 Year
  Sex: Male
  Weight: 113.4 kg

DRUGS (2)
  1. DEPAKOTE [Suspect]
     Route: 048
     Dates: start: 19841201, end: 20131202
  2. LITHIUM [Suspect]
     Route: 048
     Dates: start: 19841201, end: 20131202

REACTIONS (1)
  - Unevaluable event [None]
